FAERS Safety Report 10426454 (Version 1)
Quarter: 2014Q3

REPORT INFORMATION
  Report Type: Spontaneous
  Country: US (occurrence: None)
  Receive Date: 20140902
  Receipt Date: 20140902
  Transmission Date: 20150326
  Serious: Yes (Other)
  Sender: FDA-Public Use
  Company Number: None

PATIENT
  Age: 39 Year
  Sex: Male
  Weight: 95.26 kg

DRUGS (2)
  1. DALVANCE [Suspect]
     Active Substance: DALBAVANCIN
     Indication: GROIN ABSCESS
     Route: 042
     Dates: start: 20140826, end: 20140826
  2. DALVANCE [Suspect]
     Active Substance: DALBAVANCIN
     Indication: CELLULITIS
     Route: 042
     Dates: start: 20140826, end: 20140826

REACTIONS (5)
  - Rash macular [None]
  - Muscle tightness [None]
  - Dyspnoea [None]
  - Drug hypersensitivity [None]
  - Pruritus [None]

NARRATIVE: CASE EVENT DATE: 20140826
